FAERS Safety Report 4849068-9 (Version None)
Quarter: 2005Q4

REPORT INFORMATION
  Report Type: 
  Country: None (occurrence: None)
  Receive Date: 20051209
  Receipt Date: 20051129
  Transmission Date: 20060501
  Serious: Yes (Other)
  Sender: FDA-Public Use
  Company Number: CA-BRISTOL-MYERS SQUIBB COMPANY-13198379

PATIENT
  Age: 9 Year
  Sex: Male

DRUGS (3)
  1. STAVUDINE [Suspect]
  2. RITONAVIR [Suspect]
  3. LAMIVUDINE [Suspect]

REACTIONS (1)
  - HEPATITIS C VIRUS [None]
